FAERS Safety Report 22001270 (Version 1)
Quarter: 2023Q1

REPORT INFORMATION
  Report Type: Spontaneous
  Country: HU (occurrence: HU)
  Receive Date: 20230216
  Receipt Date: 20230216
  Transmission Date: 20230417
  Serious: Yes (Other)
  Sender: FDA-Public Use
  Company Number: HU-GLAXOSMITHKLINE-HU2023GSK025782

PATIENT

DRUGS (1)
  1. SUMATRIPTAN SUCCINATE [Suspect]
     Active Substance: SUMATRIPTAN SUCCINATE
     Indication: Migraine
     Dosage: UNK

REACTIONS (6)
  - Dizziness [Unknown]
  - Nausea [Unknown]
  - Therapy non-responder [Unknown]
  - Product counterfeit [Unknown]
  - Product substitution issue [Unknown]
  - Product contamination [Unknown]
